FAERS Safety Report 21032291 (Version 2)
Quarter: 2022Q3

REPORT INFORMATION
  Report Type: Other
  Country: BG (occurrence: None)
  Receive Date: 20220701
  Receipt Date: 20220708
  Transmission Date: 20221027
  Serious: Yes (Hospitalization)
  Sender: FDA-Public Use
  Company Number: BG-ROCHE-3125253

PATIENT
  Age: 68 Year
  Sex: Female

DRUGS (1)
  1. TOCILIZUMAB [Suspect]
     Active Substance: TOCILIZUMAB
     Indication: Rheumatoid arthritis
     Route: 058
     Dates: start: 20220310, end: 20220531

REACTIONS (1)
  - Pancreatic cyst [Recovering/Resolving]

NARRATIVE: CASE EVENT DATE: 20220601
